FAERS Safety Report 11329943 (Version 3)
Quarter: 2015Q3

REPORT INFORMATION
  Report Type: Spontaneous
  Country: US (occurrence: US)
  Receive Date: 20150803
  Receipt Date: 20150819
  Transmission Date: 20151125
  Serious: Yes (Hospitalization, Other)
  Sender: FDA-Public Use
  Company Number: US-BAYER-2015-388244

PATIENT
  Age: 28 Year
  Sex: Female

DRUGS (1)
  1. MIRENA [Suspect]
     Active Substance: LEVONORGESTREL
     Indication: MENORRHAGIA
     Dosage: 20 MCG/24HR, CONT
     Route: 015
     Dates: start: 20150511, end: 20150723

REACTIONS (9)
  - Ovarian cyst [Recovered/Resolved]
  - Dysuria [Recovered/Resolved]
  - Vaginal haemorrhage [None]
  - Adverse reaction [Recovered/Resolved]
  - Menstrual disorder [Recovered/Resolved]
  - Abdominal pain lower [Recovered/Resolved]
  - Abdominal pain [Recovered/Resolved]
  - Urinary tract infection [None]
  - Device expulsion [None]

NARRATIVE: CASE EVENT DATE: 2015
